FAERS Safety Report 10454584 (Version 1)
Quarter: 2014Q3

REPORT INFORMATION
  Report Type: Spontaneous
  Country: US (occurrence: US)
  Receive Date: 20140915
  Receipt Date: 20140915
  Transmission Date: 20150326
  Serious: No
  Sender: FDA-Public Use
  Company Number: US-BRISTOL-MYERS SQUIBB COMPANY-21138011

PATIENT
  Age: 76 Year
  Sex: Male
  Weight: 86.17 kg

DRUGS (13)
  1. ADVAIR HFA [Concomitant]
     Active Substance: FLUTICASONE PROPIONATE\SALMETEROL XINAFOATE
  2. OXYGEN. [Concomitant]
     Active Substance: OXYGEN
  3. OMEPRAZOLE. [Concomitant]
     Active Substance: OMEPRAZOLE
  4. CARTIA XT [Concomitant]
     Active Substance: DILTIAZEM HYDROCHLORIDE
  5. BABY ASPIRIN [Concomitant]
     Active Substance: ASPIRIN
  6. ISOSORBIDE [Concomitant]
     Active Substance: ISOSORBIDE
  7. LATANOPROST. [Concomitant]
     Active Substance: LATANOPROST
  8. METFORMIN [Concomitant]
     Active Substance: METFORMIN HYDROCHLORIDE
  9. LISINOPRIL. [Concomitant]
     Active Substance: LISINOPRIL
  10. CARVEDILOL. [Concomitant]
     Active Substance: CARVEDILOL
  11. SIMVASTATIN. [Concomitant]
     Active Substance: SIMVASTATIN
  12. ONGLYZA [Suspect]
     Active Substance: SAXAGLIPTIN HYDROCHLORIDE
     Indication: TYPE 2 DIABETES MELLITUS
  13. ALLOPURINOL. [Concomitant]
     Active Substance: ALLOPURINOL

REACTIONS (3)
  - Contusion [Not Recovered/Not Resolved]
  - Pain in extremity [Not Recovered/Not Resolved]
  - Arthralgia [Not Recovered/Not Resolved]
